FAERS Safety Report 7203540-5 (Version None)
Quarter: 2010Q4

REPORT INFORMATION
  Report Type: 
  Country: None (occurrence: None)
  Receive Date: 20101230
  Receipt Date: 20101222
  Transmission Date: 20110411
  Serious: Yes (Hospitalization)
  Sender: FDA-Public Use
  Company Number: FR-ASTELLAS-2010EU006912

PATIENT
  Sex: Male

DRUGS (14)
  1. PROGRAF [Suspect]
     Indication: RENAL TRANSPLANT
     Dosage: 2 DF, UNKNOWN/D
     Route: 048
     Dates: start: 20090915
  2. PROGRAF [Suspect]
     Dosage: 4.5 MG, BID
     Route: 048
  3. CORTANCYL [Suspect]
     Indication: RENAL TRANSPLANT
     Dosage: 15 MG, UNKNOWN/D
     Route: 048
     Dates: start: 20090915
  4. CORTANCYL [Suspect]
     Dosage: 10 MG, UNKNOWN/D
     Route: 065
  5. CELLCEPT [Concomitant]
     Indication: RENAL TRANSPLANT
     Dosage: 750 MG, BID
     Route: 065
     Dates: start: 20090915
  6. BACTRIM DS [Concomitant]
     Dosage: UNK
     Route: 065
  7. RIMIFON [Concomitant]
     Dosage: UNK
     Route: 065
  8. MOPRAL [Concomitant]
     Dosage: UNK
     Route: 065
  9. CORDARONE [Concomitant]
     Dosage: 200 MG, UNKNOWN/D
     Route: 065
  10. AMLODIPINE [Concomitant]
     Dosage: UNK
     Route: 065
  11. EUPRESSYL [Concomitant]
     Dosage: 60 MG, UNKNOWN/D
     Route: 065
  12. SECTRAL [Concomitant]
     Dosage: UNK
     Route: 065
  13. SODIUM BICARBONATE [Concomitant]
     Dosage: UNK
     Route: 065
  14. CALCIPARINE [Concomitant]
     Dosage: UNK
     Route: 065

REACTIONS (2)
  - OVERDOSE [None]
  - RENAL FAILURE ACUTE [None]
